FAERS Safety Report 6492972-9 (Version None)
Quarter: 2009Q4

REPORT INFORMATION
  Report Type: 
  Country: None (occurrence: None)
  Receive Date: 20091214
  Receipt Date: 20091204
  Transmission Date: 20100525
  Serious: Yes (Hospitalization, Other)
  Sender: FDA-Public Use
  Company Number: US-AMGEN-QUU378643

PATIENT
  Sex: Female

DRUGS (2)
  1. ENBREL [Suspect]
     Indication: RHEUMATOID ARTHRITIS
     Route: 058
     Dates: start: 20011101, end: 20090415
  2. METHOTREXATE [Concomitant]

REACTIONS (3)
  - MENOMETRORRHAGIA [None]
  - PRECANCEROUS CELLS PRESENT [None]
  - SYSTEMIC LUPUS ERYTHEMATOSUS [None]
